FAERS Safety Report 17812950 (Version 1)
Quarter: 2020Q2

REPORT INFORMATION
  Report Type: Spontaneous
  Country: CA (occurrence: CA)
  Receive Date: 20200521
  Receipt Date: 20200521
  Transmission Date: 20200714
  Serious: Yes (Other)
  Sender: FDA-Public Use
  Company Number: CA-JNJFOC-20200513968

PATIENT
  Age: 39 Year
  Sex: Male

DRUGS (1)
  1. RISPERDAL [Suspect]
     Active Substance: RISPERIDONE
     Indication: PRODUCT USED FOR UNKNOWN INDICATION
     Route: 030

REACTIONS (6)
  - Off label use [Unknown]
  - Suicide attempt [Unknown]
  - Restlessness [Unknown]
  - Wrong technique in product usage process [Unknown]
  - Dyskinesia [Unknown]
  - Muscle spasms [Unknown]

NARRATIVE: CASE EVENT DATE: 19971218
